FAERS Safety Report 5881313-3 (Version None)
Quarter: 2008Q3

REPORT INFORMATION
  Report Type: 
  Country: None (occurrence: None)
  Receive Date: 20080912
  Receipt Date: 20080707
  Transmission Date: 20090109
  Serious: No
  Sender: FDA-Public Use
  Company Number: US-ABBOTT-08P-163-0459599-00

PATIENT
  Sex: Female
  Weight: 81.72 kg

DRUGS (6)
  1. HUMIRA [Suspect]
     Indication: RHEUMATOID ARTHRITIS
     Route: 050
     Dates: start: 20080601
  2. BLOOD PRESSURE MEDICINE [Concomitant]
     Indication: BLOOD PRESSURE
  3. GLIPIZIDE [Concomitant]
     Indication: DIABETES MELLITUS
  4. ALPRAZOLAM [Concomitant]
     Indication: ANXIETY
  5. PREDNISONE TAB [Concomitant]
     Indication: RHEUMATOID ARTHRITIS
     Route: 048
  6. ACETAMINOPHEN W/ PROPOXYPHENE HCL [Concomitant]
     Indication: PAIN
     Route: 048

REACTIONS (12)
  - COUGH [None]
  - CYSTITIS [None]
  - DYSPHAGIA [None]
  - FAECES HARD [None]
  - HEADACHE [None]
  - MUSCULAR WEAKNESS [None]
  - MYALGIA [None]
  - OROPHARYNGEAL PAIN [None]
  - PAIN IN EXTREMITY [None]
  - PHARYNGEAL DISORDER [None]
  - PHARYNGEAL ERYTHEMA [None]
  - RHINORRHOEA [None]
